FAERS Safety Report 8902348 (Version 1)
Quarter: 2012Q4

REPORT INFORMATION
  Report Type: Report from Study
  Country: DE (occurrence: DE)
  Receive Date: 20121112
  Receipt Date: 20121112
  Transmission Date: 20130627
  Serious: Yes (Death, Hospitalization)
  Sender: FDA-Public Use
  Company Number: DE-ROCHE-1154180

PATIENT
  Sex: Male
  Weight: 51 kg

DRUGS (2)
  1. TRASTUZUMAB [Suspect]
     Indication: METASTATIC GASTRIC CANCER
     Route: 042
     Dates: start: 20110301
  2. TRASTUZUMAB [Suspect]
     Route: 042
     Dates: end: 20110616

REACTIONS (3)
  - Gastrointestinal haemorrhage [Fatal]
  - Neoplasm malignant [Fatal]
  - Ileus [Unknown]
